FAERS Safety Report 5756370-5 (Version None)
Quarter: 2008Q2

REPORT INFORMATION
  Report Type: 
  Country: None (occurrence: None)
  Receive Date: 20080528
  Receipt Date: 20080528
  Transmission Date: 20081010
  Serious: Yes (Hospitalization)
  Sender: FDA-Public Use
  Company Number: None

PATIENT
  Age: 59 Year
  Sex: Male
  Weight: 89.8 kg

DRUGS (2)
  1. METHOCARBAMOL [Suspect]
     Indication: MUSCLE RELAXANT THERAPY
     Dosage: 500 MG HS PO
     Route: 048
     Dates: start: 20050523, end: 20080519
  2. METOCLOPRAMIDE [Suspect]
     Indication: GASTROINTESTINAL DISORDER
     Dosage: 10 MG QID PO
     Route: 048
     Dates: start: 20071123, end: 20080519

REACTIONS (1)
  - PANCYTOPENIA [None]
